FAERS Safety Report 16725452 (Version 5)
Quarter: 2019Q3

REPORT INFORMATION
  Report Type: Spontaneous
  Country: US (occurrence: US)
  Receive Date: 20190821
  Receipt Date: 20190925
  Transmission Date: 20191005
  Serious: Yes (Hospitalization)
  Sender: FDA-Public Use
  Company Number: US-AMGEN-USASP2019128192

PATIENT
  Age: 57 Year
  Sex: Female
  Weight: 54.88 kg

DRUGS (7)
  1. NEULASTA [Suspect]
     Active Substance: PEGFILGRASTIM
     Indication: PRODUCT USED FOR UNKNOWN INDICATION
     Dosage: 6 MILLIGRAM, Q3WK
     Route: 058
  2. TAXOTERE [Concomitant]
     Active Substance: DOCETAXEL
     Indication: BREAST CANCER
  3. CARBO [CARBOPLATIN] [Concomitant]
     Indication: BREAST CANCER
  4. CARBO [CARBOPLATIN] [Concomitant]
     Indication: INVASIVE DUCTAL BREAST CARCINOMA
     Dosage: 20 MILLIGRAM, Q3WK
     Dates: start: 20190801
  5. NEULASTA [Suspect]
     Active Substance: PEGFILGRASTIM
     Dosage: 6 MILLIGRAM, Q3WK
     Route: 058
  6. NEULASTA [Suspect]
     Active Substance: PEGFILGRASTIM
     Dosage: 6 MILLIGRAM, Q3WK
     Route: 058
  7. TAXOTERE [Concomitant]
     Active Substance: DOCETAXEL
     Indication: INVASIVE DUCTAL BREAST CARCINOMA
     Dosage: 120 MILLIGRAM, Q3WK
     Dates: start: 20190801

REACTIONS (3)
  - Palpitations [Recovered/Resolved]
  - Device malfunction [Unknown]
  - Leukocytosis [Recovered/Resolved]

NARRATIVE: CASE EVENT DATE: 20190801
